FAERS Safety Report 4955693-7 (Version None)
Quarter: 2006Q1

REPORT INFORMATION
  Report Type: 
  Country: None (occurrence: None)
  Receive Date: 20060323
  Receipt Date: 20060307
  Transmission Date: 20060701
  Serious: Yes (Other)
  Sender: FDA-Public Use
  Company Number: CHNY2006DE01001

PATIENT
  Sex: Female

DRUGS (1)
  1. NICOTINE [Suspect]
     Indication: SMOKING CESSATION THERAPY
     Dosage: 7 MG, QD, TRANSDERMAL
     Route: 062
     Dates: start: 20060101, end: 20060201

REACTIONS (2)
  - DEPRESSION [None]
  - DRUG WITHDRAWAL SYNDROME [None]
